FAERS Safety Report 17803318 (Version 1)
Quarter: 2020Q2

REPORT INFORMATION
  Report Type: Spontaneous
  Country: US (occurrence: US)
  Receive Date: 20200519
  Receipt Date: 20200519
  Transmission Date: 20200714
  Serious: Yes (Other)
  Sender: FDA-Public Use
  Company Number: US-PFIZER INC-2020197276

PATIENT
  Sex: Female
  Weight: 69.85 kg

DRUGS (1)
  1. TOVIAZ [Suspect]
     Active Substance: FESOTERODINE FUMARATE
     Indication: INCONTINENCE
     Dosage: 8 MG, ONCE DAILY (AT NIGHT BEFORE BED)

REACTIONS (6)
  - Fatigue [Unknown]
  - Optic nerve disorder [Not Recovered/Not Resolved]
  - Ophthalmic herpes simplex [Unknown]
  - Altered visual depth perception [Not Recovered/Not Resolved]
  - Cystitis [Unknown]
  - Visual impairment [Unknown]
